FAERS Safety Report 10058191 (Version 1)
Quarter: 2014Q2

REPORT INFORMATION
  Report Type: Spontaneous
  Country: US (occurrence: US)
  Receive Date: 20140404
  Receipt Date: 20140404
  Transmission Date: 20141212
  Serious: Yes (Hospitalization, Other)
  Sender: FDA-Public Use
  Company Number: US-PFIZER INC-2014095308

PATIENT
  Age: 63 Year
  Sex: Male

DRUGS (5)
  1. ZOLOFT [Suspect]
     Dosage: UNK
  2. FENTANYL [Suspect]
     Dosage: UNK
  3. NUEDEXTA [Suspect]
     Dosage: UNK
  4. KEPPRA [Suspect]
     Dosage: UNK
  5. ZOFRAN [Suspect]
     Dosage: UNK

REACTIONS (3)
  - Convulsion [Unknown]
  - Serotonin syndrome [Unknown]
  - Pyrexia [Unknown]
